FAERS Safety Report 5164173-8 (Version None)
Quarter: 2006Q4

REPORT INFORMATION
  Report Type: 
  Country: None (occurrence: None)
  Receive Date: 20060918
  Receipt Date: 20051107
  Transmission Date: 20070319
  Serious: Yes (Other)
  Sender: FDA-Public Use
  Company Number: US-JNJFOC-20051102569

PATIENT
  Age: 40 Year
  Sex: Female
  Weight: 63.5036 kg

DRUGS (12)
  1. TOPAMAX [Suspect]
     Indication: ANXIETY
     Dosage: 25 MG, 3 IN 1 DAY, ORAL
     Route: 048
     Dates: start: 20050801, end: 20051001
  2. PREDNISONE TAB [Concomitant]
  3. BENADRYL [Concomitant]
  4. XANAX [Concomitant]
  5. INSULIN [Concomitant]
  6. HUMALOG INSULIN (INSULIN LISPRO) [Concomitant]
  7. SYNTHROID [Concomitant]
  8. LOVASTATIN [Concomitant]
  9. NORVASC [Concomitant]
  10. DOXASIN (DOXAZOSIN) [Concomitant]
  11. ASPIRIN [Concomitant]
  12. DARVOCET [Concomitant]

REACTIONS (3)
  - DISORIENTATION [None]
  - VISION BLURRED [None]
  - WEIGHT DECREASED [None]
